FAERS Safety Report 6417507-8 (Version None)
Quarter: 2009Q4

REPORT INFORMATION
  Report Type: 
  Country: None (occurrence: None)
  Receive Date: 20091026
  Receipt Date: 20091013
  Transmission Date: 20100525
  Serious: Yes (Disabling, Other)
  Sender: FDA-Public Use
  Company Number: ADR38122009

PATIENT
  Age: 53 Year
  Sex: Male

DRUGS (4)
  1. SIMVASTATIN [Suspect]
     Indication: MYOCARDIAL ISCHAEMIA
     Dosage: 40 MG, ORAL USE
     Route: 048
     Dates: start: 20080218, end: 20080301
  2. ASPIRIN [Concomitant]
  3. SYNALAR (FLUOCINOLONE ACETONIDE) [Concomitant]
  4. VIAZEM XL      (DILITAZEM HYDROCHLORIDE) [Concomitant]

REACTIONS (2)
  - CONDITION AGGRAVATED [None]
  - PSORIASIS [None]
